FAERS Safety Report 4572008-7 (Version None)
Quarter: 2005Q1

REPORT INFORMATION
  Report Type: 
  Country: None (occurrence: None)
  Receive Date: 20050202
  Receipt Date: 20050113
  Transmission Date: 20050727
  Serious: No
  Sender: FDA-Public Use
  Company Number: USA050188257

PATIENT
  Sex: Male

DRUGS (2)
  1. STRATTERA [Suspect]
  2. ANABOLIC STEROIDS [Concomitant]

REACTIONS (2)
  - DRUG ABUSER [None]
  - HEPATIC ENZYME INCREASED [None]
